FAERS Safety Report 8329777-X (Version None)
Quarter: 2012Q2

REPORT INFORMATION
  Report Type: 
  Country: None (occurrence: None)
  Receive Date: 20120502
  Receipt Date: 20100521
  Transmission Date: 20120825
  Serious: No
  Sender: FDA-Public Use
  Company Number: US-TEVA-2009011677

PATIENT
  Sex: Female
  Weight: 161.17 kg

DRUGS (17)
  1. GLUCOVANCE [Concomitant]
     Indication: DIABETES MELLITUS
     Dosage: 22 MILLIGRAM;
     Dates: start: 20050101
  2. GABAPENTIN [Concomitant]
     Indication: DIABETIC NEUROPATHY
  3. FLEXERIL [Concomitant]
  4. NUVIGIL [Suspect]
     Indication: SLEEP APNOEA SYNDROME
     Dosage: 250 MILLIGRAM;
     Route: 048
     Dates: start: 20090501
  5. MOBIC [Concomitant]
     Dosage: 15 MILLIGRAM;
  6. B12/FISH OIL [Concomitant]
  7. INVEGA [Concomitant]
     Indication: BIPOLAR I DISORDER
     Dosage: 6 MILLIGRAM;
     Dates: start: 20050101, end: 20100201
  8. TOPROL-XL [Concomitant]
     Indication: HYPERTENSION
     Dates: start: 20090101
  9. NUVIGIL [Suspect]
     Dosage: 500 MILLIGRAM;
     Route: 048
     Dates: start: 20090101
  10. COGENTIN [Concomitant]
  11. XANAX [Concomitant]
     Indication: ANXIETY
     Dates: start: 19900101
  12. LISINOPRIL [Concomitant]
     Indication: HYPERTENSION
     Dosage: 40 MILLIGRAM;
     Dates: start: 20080101
  13. MOBIC [Concomitant]
     Indication: ARTHRITIS
     Dosage: 30 MILLIGRAM;
  14. LORCET-HD [Concomitant]
     Indication: PAIN
     Dosage: 40 MILLIGRAM;
  15. ASPIRIN [Concomitant]
  16. CYMBALTA [Concomitant]
     Indication: BIPOLAR I DISORDER
     Dosage: 60 MILLIGRAM;
     Dates: start: 20050101
  17. ED-A-HIST [Concomitant]
     Indication: SINUS DISORDER

REACTIONS (2)
  - DRUG PRESCRIBING ERROR [None]
  - DRUG TOLERANCE [None]
